FAERS Safety Report 6984817 (Version 3)
Quarter: 2014Q2

REPORT INFORMATION
  Report Type: Spontaneous
  Country: US (occurrence: US)
  Receive Date: 20090501
  Receipt Date: 20140415
  Transmission Date: 20141212
  Serious: Yes (Hospitalization, Other)
  Sender: FDA-Public Use
  Company Number: US-ALEXION-A200800330

PATIENT
  Age: 42 Year
  Sex: Female

DRUGS (2)
  1. SOLIRIS [Suspect]
     Indication: PAROXYSMAL NOCTURNAL HAEMOGLOBINURIA
     Dosage: UNK
     Route: 042
  2. MAXALT [Concomitant]
     Indication: MIGRAINE
     Dosage: UNK, PRN

REACTIONS (5)
  - Bacteraemia [Unknown]
  - Urinary tract infection [Unknown]
  - Arthralgia [Unknown]
  - Haemoglobin decreased [Unknown]
  - Myalgia [Unknown]
